FAERS Safety Report 13860230 (Version 7)
Quarter: 2017Q4

REPORT INFORMATION
  Report Type: Spontaneous
  Country: US (occurrence: US)
  Receive Date: 20170811
  Receipt Date: 20171230
  Transmission Date: 20180320
  Serious: Yes (Death, Life-Threatening, Hospitalization, Disabling, Other)
  Sender: FDA-Public Use
  Company Number: PHEH2017US024529

PATIENT
  Age: 76 Year
  Sex: Male
  Weight: 121.2 kg

DRUGS (9)
  1. VOTRIENT [Suspect]
     Active Substance: PAZOPANIB HYDROCHLORIDE
     Indication: RENAL CELL CARCINOMA
     Dosage: 600 MG, QD
     Route: 065
     Dates: start: 20170613
  2. FLUTICASONE. [Suspect]
     Active Substance: FLUTICASONE
     Indication: CHRONIC OBSTRUCTIVE PULMONARY DISEASE
     Dosage: 100/50 MG, BID
     Route: 055
  3. APIXABAN [Suspect]
     Active Substance: APIXABAN
     Indication: ATRIAL FIBRILLATION
     Dosage: 2.5 MG, BID
     Route: 048
     Dates: end: 20170713
  4. ASA [Concomitant]
     Active Substance: ASPIRIN
     Indication: PRODUCT USED FOR UNKNOWN INDICATION
     Route: 065
  5. VANCOMYCIN [Concomitant]
     Active Substance: VANCOMYCIN
     Indication: PRODUCT USED FOR UNKNOWN INDICATION
     Route: 065
  6. FUROSEMIDE. [Concomitant]
     Active Substance: FUROSEMIDE
     Indication: PRODUCT USED FOR UNKNOWN INDICATION
     Route: 065
  7. ATENOLOL. [Suspect]
     Active Substance: ATENOLOL
     Indication: ATRIAL FIBRILLATION
     Dosage: 25 MG, QD
     Route: 048
     Dates: end: 20170714
  8. ALBUTEROL. [Suspect]
     Active Substance: ALBUTEROL
     Indication: CHRONIC OBSTRUCTIVE PULMONARY DISEASE
     Dosage: 2.5 MG, PRN
     Route: 055
  9. AFINITOR [Suspect]
     Active Substance: EVEROLIMUS
     Indication: PRODUCT USED FOR UNKNOWN INDICATION
     Dosage: UNK
     Route: 065

REACTIONS (34)
  - Thrombotic thrombocytopenic purpura [Unknown]
  - Schistocytosis [Recovered/Resolved]
  - Encephalopathy [Unknown]
  - Hypertension [Unknown]
  - Haemolysis [Unknown]
  - Thrombocytopenia [Unknown]
  - Blood lactate dehydrogenase increased [Not Recovered/Not Resolved]
  - Arteriosclerosis [Fatal]
  - Fatigue [Fatal]
  - Thrombotic microangiopathy [Not Recovered/Not Resolved]
  - Haematuria [Unknown]
  - Leukocytosis [Unknown]
  - Haemolytic anaemia [Unknown]
  - Lactic acidosis [Unknown]
  - Confusional state [Unknown]
  - Staphylococcal infection [Unknown]
  - Atrial fibrillation [Fatal]
  - Pulmonary oedema [Unknown]
  - Jugular vein thrombosis [Unknown]
  - Hyponatraemia [Unknown]
  - Nausea [Fatal]
  - Decreased appetite [Fatal]
  - Obesity [Fatal]
  - ADAMTS13 activity decreased [Unknown]
  - Respiratory distress [Not Recovered/Not Resolved]
  - Bundle branch block right [Unknown]
  - Dyspnoea [Fatal]
  - Mental impairment [Unknown]
  - Mental status changes [Unknown]
  - Pyrexia [Unknown]
  - Clear cell renal cell carcinoma [Fatal]
  - Acute kidney injury [Recovering/Resolving]
  - Performance status decreased [Unknown]
  - Atelectasis [Unknown]

NARRATIVE: CASE EVENT DATE: 201707
